FAERS Safety Report 17562686 (Version 2)
Quarter: 2020Q2

REPORT INFORMATION
  Report Type: Spontaneous
  Country: US (occurrence: US)
  Receive Date: 20200319
  Receipt Date: 20200405
  Transmission Date: 20200713
  Serious: Yes (Other)
  Sender: FDA-Public Use
  Company Number: NVSC2020US073261

PATIENT
  Age: 74 Year
  Sex: Female
  Weight: 70.31 kg

DRUGS (1)
  1. BEOVU [Suspect]
     Active Substance: BROLUCIZUMAB-DBLL
     Indication: MACULAR DEGENERATION
     Route: 050
     Dates: start: 20200122, end: 20200122

REACTIONS (3)
  - Vitreous haze [Recovering/Resolving]
  - Eye inflammation [Recovering/Resolving]
  - Anterior chamber cell [Recovering/Resolving]

NARRATIVE: CASE EVENT DATE: 20200122
